FAERS Safety Report 9849171 (Version 1)
Quarter: 2013Q4

REPORT INFORMATION
  Report Type: Spontaneous
  Country: US (occurrence: None)
  Receive Date: 20131223
  Receipt Date: 20131223
  Transmission Date: 20140711
  Serious: No
  Sender: FDA-Public Use
  Company Number: CABO-13003680

PATIENT
  Age: 57 Year
  Sex: Male
  Weight: 84.1 kg

DRUGS (4)
  1. COMETRIQ (CABOZANTINIB) CAPSULE [Suspect]
     Indication: THYROID CANCER
     Route: 048
     Dates: start: 20131024, end: 20131127
  2. TYLENOL (PARACETAMOL) [Concomitant]
  3. LEVOTHYROXINE (LEVOTHYROXINE SODIUM) [Concomitant]
  4. GABAPENTIN (GABAPENTIN) [Concomitant]

REACTIONS (6)
  - Neck pain [None]
  - Palmar-plantar erythrodysaesthesia syndrome [None]
  - Decreased appetite [None]
  - Oropharyngeal pain [None]
  - Headache [None]
  - Dysphagia [None]
